FAERS Safety Report 4393004-9 (Version None)
Quarter: 2004Q3

REPORT INFORMATION
  Report Type: 
  Country: None (occurrence: None)
  Receive Date: 20040708
  Receipt Date: 20040513
  Transmission Date: 20050211
  Serious: Yes (Hospitalization)
  Sender: FDA-Public Use
  Company Number: US-GLAXOSMITHKLINE-A0510944A

PATIENT
  Age: 69 Year
  Sex: Male
  Weight: 61.4 kg

DRUGS (8)
  1. ADVAIR DISKUS 100/50 [Suspect]
     Route: 055
     Dates: start: 20040419, end: 20040513
  2. CLONIDINE HCL [Concomitant]
     Indication: ANXIETY
     Route: 048
  3. TOPROL-XL [Concomitant]
     Route: 048
  4. PROCARDIA XL [Concomitant]
     Indication: HYPERTENSION
     Route: 048
  5. FOLIC ACID [Concomitant]
     Route: 048
  6. MAGNESIUM OXIDE [Concomitant]
     Route: 048
  7. ATROVENT [Concomitant]
     Dosage: 2PUFF AT NIGHT
     Route: 055
  8. SPIRONOLACTONE [Concomitant]
     Route: 048

REACTIONS (1)
  - HYPOKALAEMIA [None]
